FAERS Safety Report 15456525 (Version 1)
Quarter: 2018Q3

REPORT INFORMATION
  Report Type: Spontaneous
  Country: US (occurrence: US)
  Receive Date: 20180928
  Receipt Date: 20180928
  Transmission Date: 20181014
  Serious: No
  Sender: FDA-Public Use
  Company Number: None

PATIENT

DRUGS (1)
  1. LANZOPRAZOLE 15 MG [Suspect]
     Active Substance: LANSOPRAZOLE

REACTIONS (1)
  - Product solubility abnormal [None]
